FAERS Safety Report 19264945 (Version 2)
Quarter: 2021Q3

REPORT INFORMATION
  Report Type: Spontaneous
  Country: JP (occurrence: JP)
  Receive Date: 20210517
  Receipt Date: 20210709
  Transmission Date: 20211014
  Serious: Yes (Hospitalization)
  Sender: FDA-Public Use
  Company Number: JP-MYLANLABS-2021M1028262

PATIENT
  Age: 21 Year
  Sex: Male

DRUGS (2)
  1. TAZOPIPE [Suspect]
     Active Substance: PIPERACILLIN SODIUM\TAZOBACTAM SODIUM
     Indication: GASTRITIS BACTERIAL
     Route: 042
  2. PREDONINE [Suspect]
     Active Substance: PREDNISOLONE
     Indication: HYPERSENSITIVITY
     Dosage: 40 MILLIGRAM, TAPERING OFF
     Route: 065

REACTIONS (3)
  - Disease recurrence [Recovered/Resolved]
  - Gastritis bacterial [Recovered/Resolved]
  - Hypersensitivity [Unknown]
